FAERS Safety Report 11269990 (Version 2)
Quarter: 2015Q3

REPORT INFORMATION
  Report Type: Spontaneous
  Country: DE (occurrence: DE)
  Receive Date: 20150714
  Receipt Date: 20150807
  Transmission Date: 20151125
  Serious: Yes (Hospitalization)
  Sender: FDA-Public Use
  Company Number: DE-PFIZER INC-2015186139

PATIENT
  Age: 75 Year
  Sex: Male
  Weight: 58 kg

DRUGS (5)
  1. CANDESARTAN [Concomitant]
     Active Substance: CANDESARTAN
  2. RISPERDAL [Concomitant]
     Active Substance: RISPERIDONE
  3. ISOPTIN [Concomitant]
     Active Substance: VERAPAMIL HYDROCHLORIDE
  4. VFEND [Suspect]
     Active Substance: VORICONAZOLE
     Indication: PNEUMONIA
     Dosage: 400 MG, DAILY
     Route: 048
     Dates: start: 20150521, end: 20150528
  5. AMLODIPINE [Concomitant]
     Active Substance: AMLODIPINE BESYLATE

REACTIONS (8)
  - Confusional state [Recovered/Resolved]
  - Blood albumin decreased [Recovered/Resolved]
  - Paraesthesia [Recovered/Resolved]
  - Hypomagnesaemia [Recovered/Resolved]
  - Blood potassium decreased [Recovered/Resolved]
  - Blood calcium decreased [Recovered/Resolved]
  - Asthenia [Recovered/Resolved]
  - Muscle spasms [Recovered/Resolved]

NARRATIVE: CASE EVENT DATE: 201505
